FAERS Safety Report 5037327-9 (Version None)
Quarter: 2006Q2

REPORT INFORMATION
  Report Type: 
  Country: None (occurrence: None)
  Receive Date: 20060628
  Receipt Date: 20060616
  Transmission Date: 20061013
  Serious: Yes (Death)
  Sender: FDA-Public Use
  Company Number: US-BRISTOL-MYERS SQUIBB COMPANY-13421714

PATIENT

DRUGS (2)
  1. ARIPIPRAZOLE [Suspect]
  2. CLOPIXOL [Suspect]

REACTIONS (1)
  - COMPLETED SUICIDE [None]
